FAERS Safety Report 21520581 (Version 9)
Quarter: 2025Q3

REPORT INFORMATION
  Report Type: Spontaneous
  Country: CA (occurrence: CA)
  Receive Date: 20221028
  Receipt Date: 20250808
  Transmission Date: 20251021
  Serious: Yes (Death, Life-Threatening, Hospitalization, Disabling, Other)
  Sender: SANOFI AVENTIS
  Company Number: CA-BAUSCH-BL-2022-023536

PATIENT
  Age: 43 Year
  Sex: Female
  Weight: 68 kg

DRUGS (39)
  1. DICLOFENAC POTASSIUM [Suspect]
     Active Substance: DICLOFENAC POTASSIUM
     Indication: Rheumatoid arthritis
     Route: 065
  2. TRAMADOL HYDROCHLORIDE [Suspect]
     Active Substance: TRAMADOL HYDROCHLORIDE
     Indication: Product used for unknown indication
  3. DICLOFENAC SODIUM [Suspect]
     Active Substance: DICLOFENAC SODIUM
     Indication: Product used for unknown indication
     Route: 047
  4. ARAVA [Suspect]
     Active Substance: LEFLUNOMIDE
     Indication: Rheumatoid arthritis
     Dosage: 20 MG, QD
     Route: 048
  5. DESOXIMETASONE [Suspect]
     Active Substance: DESOXIMETASONE
     Indication: Rheumatoid arthritis
     Dosage: 25 MG, QW
     Route: 048
  6. DESOXIMETASONE [Suspect]
     Active Substance: DESOXIMETASONE
     Route: 058
  7. CORTISONE ACETATE [Suspect]
     Active Substance: CORTISONE ACETATE
     Indication: Rheumatoid arthritis
     Route: 061
  8. FOLIC ACID [Suspect]
     Active Substance: FOLIC ACID
     Indication: Rheumatoid arthritis
     Route: 065
  9. FOLIC ACID [Suspect]
     Active Substance: FOLIC ACID
     Route: 058
  10. FOLIC ACID [Suspect]
     Active Substance: FOLIC ACID
  11. FOLIC ACID [Suspect]
     Active Substance: FOLIC ACID
  12. FOLIC ACID [Suspect]
     Active Substance: FOLIC ACID
  13. FOLIC ACID [Suspect]
     Active Substance: FOLIC ACID
  14. FOLIC ACID [Suspect]
     Active Substance: FOLIC ACID
  15. METHOTREXATE [Suspect]
     Active Substance: METHOTREXATE
     Indication: Rheumatoid arthritis
     Dosage: UNK, QD
     Route: 048
  16. METHOTREXATE [Suspect]
     Active Substance: METHOTREXATE
     Dosage: 25 MG, QW
     Route: 013
  17. METHOTREXATE [Suspect]
     Active Substance: METHOTREXATE
     Dosage: 20 MG, QD
     Route: 048
  18. KEVZARA [Suspect]
     Active Substance: SARILUMAB
     Indication: Rheumatoid arthritis
     Route: 065
  19. MYCOPHENOLATE MOFETIL [Suspect]
     Active Substance: MYCOPHENOLATE MOFETIL
     Indication: Product used for unknown indication
     Route: 065
  20. OXYCODONE [Suspect]
     Active Substance: OXYCODONE
     Indication: Product used for unknown indication
     Route: 065
  21. NAPROXEN SODIUM [Suspect]
     Active Substance: NAPROXEN SODIUM
     Indication: Rheumatoid arthritis
     Dosage: 500 MG, BID
     Route: 065
  22. PREDNISONE [Suspect]
     Active Substance: PREDNISONE
     Indication: Rheumatoid arthritis
     Route: 042
  23. PREDNISONE [Suspect]
     Active Substance: PREDNISONE
     Indication: Psoriatic arthropathy
     Route: 048
  24. PREDNISONE [Suspect]
     Active Substance: PREDNISONE
     Route: 048
  25. SULFASALAZINE [Suspect]
     Active Substance: SULFASALAZINE
     Indication: Rheumatoid arthritis
     Dosage: 1 G, QD
     Route: 065
  26. SULFASALAZINE [Suspect]
     Active Substance: SULFASALAZINE
     Route: 048
  27. SULFASALAZINE [Suspect]
     Active Substance: SULFASALAZINE
     Dosage: 1000 MG, BID
     Route: 048
  28. SULFASALAZINE [Suspect]
     Active Substance: SULFASALAZINE
     Dosage: 1 G, BID
  29. CHLORHEXIDINE GLUCONATE [Suspect]
     Active Substance: CHLORHEXIDINE GLUCONATE
     Route: 002
  30. ACETAMINOPHEN [Suspect]
     Active Substance: ACETAMINOPHEN
     Indication: Rheumatoid arthritis
  31. ALENDRONIC ACID [Suspect]
     Active Substance: ALENDRONIC ACID
     Indication: Rheumatoid arthritis
  32. CALCIUM CARBONATE [Suspect]
     Active Substance: CALCIUM CARBONATE
  33. ALENDRONATE SODIUM [Suspect]
     Active Substance: ALENDRONATE SODIUM
     Indication: Rheumatoid arthritis
     Route: 048
  34. CELECOXIB [Suspect]
     Active Substance: CELECOXIB
     Indication: Rheumatoid arthritis
     Dosage: 2 DF, QD
     Route: 048
  35. CELECOXIB [Suspect]
     Active Substance: CELECOXIB
     Route: 048
  36. HYDROXYCHLOROQUINE [Suspect]
     Active Substance: HYDROXYCHLOROQUINE
     Indication: Rheumatoid arthritis
     Dosage: 420 MG, QD
     Route: 048
  37. HYDROXYCHLOROQUINE [Suspect]
     Active Substance: HYDROXYCHLOROQUINE
     Indication: Systemic lupus erythematosus
     Dosage: 400 MG, QD
     Route: 048
  38. HYDROXYCHLOROQUINE [Suspect]
     Active Substance: HYDROXYCHLOROQUINE
     Dosage: 40 MG, QD
     Route: 066
  39. PREGABALIN [Suspect]
     Active Substance: PREGABALIN
     Indication: Fibromyalgia

REACTIONS (26)
  - Autoimmune disorder [Fatal]
  - Deep vein thrombosis postoperative [Fatal]
  - Duodenal ulcer perforation [Fatal]
  - Liver injury [Fatal]
  - Lower respiratory tract infection [Fatal]
  - Pemphigus [Fatal]
  - Pericarditis [Fatal]
  - Psoriatic arthropathy [Fatal]
  - Rheumatic fever [Fatal]
  - Rheumatoid arthritis [Fatal]
  - Systemic lupus erythematosus [Fatal]
  - Type 2 diabetes mellitus [Fatal]
  - Dislocation of vertebra [Fatal]
  - Therapy non-responder [Fatal]
  - Therapeutic response decreased [Fatal]
  - Treatment failure [Fatal]
  - Therapeutic product effect decreased [Fatal]
  - Off label use [Fatal]
  - Intentional product use issue [Fatal]
  - Contraindicated product administered [Fatal]
  - Drug ineffective [Fatal]
  - Exposure during pregnancy [Fatal]
  - Maternal exposure during pregnancy [Fatal]
  - Prescribed overdose [Fatal]
  - Product use in unapproved indication [Fatal]
  - Product use issue [Fatal]
